FAERS Safety Report 22082050 (Version 4)
Quarter: 2024Q3

REPORT INFORMATION
  Report Type: Report from Study
  Country: US (occurrence: US)
  Receive Date: 20230310
  Receipt Date: 20240727
  Transmission Date: 20241017
  Serious: Yes (Hospitalization, Other)
  Sender: ABBVIE
  Company Number: US-ABBVIE-4334443

PATIENT
  Age: 75 Year
  Sex: Female

DRUGS (2)
  1. HUMIRA [Suspect]
     Active Substance: ADALIMUMAB
     Indication: Product used for unknown indication
     Dosage: FORM STRENGTH: 40 MILLIGRAM, CITRATE FREE
     Route: 058
     Dates: start: 20200301
  2. HUMIRA [Suspect]
     Active Substance: ADALIMUMAB
     Route: 058
     Dates: start: 20190501

REACTIONS (6)
  - Spinal stroke [Not Recovered/Not Resolved]
  - Headache [Unknown]
  - Spinal cord haemorrhage [Not Recovered/Not Resolved]
  - Spinal artery thrombosis [Unknown]
  - Paraplegia [Unknown]
  - Diplopia [Unknown]

NARRATIVE: CASE EVENT DATE: 20221101
